FAERS Safety Report 15606827 (Version 1)
Quarter: 2018Q4

REPORT INFORMATION
  Report Type: Spontaneous
  Country: US (occurrence: US)
  Receive Date: 20181111
  Receipt Date: 20181111
  Transmission Date: 20190205
  Serious: No
  Sender: FDA-Public Use
  Company Number: None

PATIENT
  Age: 35 Year
  Sex: Female
  Weight: 67.5 kg

DRUGS (4)
  1. BACLOFEN. [Concomitant]
     Active Substance: BACLOFEN
  2. GABAPENTIN. [Concomitant]
     Active Substance: GABAPENTIN
  3. ICY HOT [Suspect]
     Active Substance: MENTHOL\METHYL SALICYLATE
     Indication: MYALGIA
     Route: 061
     Dates: start: 20181109, end: 20181110
  4. METHADONE HCL [Concomitant]
     Active Substance: METHADONE HYDROCHLORIDE

REACTIONS (3)
  - Application site vesicles [None]
  - Application site pain [None]
  - Application site burn [None]

NARRATIVE: CASE EVENT DATE: 20181110
